FAERS Safety Report 10554255 (Version 19)
Quarter: 2016Q4

REPORT INFORMATION
  Report Type: Spontaneous
  Country: CA (occurrence: CA)
  Receive Date: 20141030
  Receipt Date: 20161128
  Transmission Date: 20170206
  Serious: Yes (Hospitalization, Other)
  Sender: FDA-Public Use
  Company Number: CA-GSKJP-KK201404454GSK1550188002

PATIENT
  Age: 57 Year
  Sex: Female
  Weight: 39 kg

DRUGS (27)
  1. BENLYSTA [Suspect]
     Active Substance: BELIMUMAB
     Indication: SYSTEMIC LUPUS ERYTHEMATOSUS
     Dosage: 0,2,4 WEEKS THEN EVERY 4 WEEKS
     Route: 042
     Dates: start: 20140123, end: 20140206
  2. BENLYSTA [Suspect]
     Active Substance: BELIMUMAB
     Dosage: 820 MG, UNK
     Route: 042
  3. BENLYSTA [Suspect]
     Active Substance: BELIMUMAB
     Dosage: 840 MG, UNK
     Route: 042
  4. PREDNISONE. [Suspect]
     Active Substance: PREDNISONE
     Indication: PRODUCT USED FOR UNKNOWN INDICATION
     Dosage: 20 MG, QD
  5. PREDNISONE. [Suspect]
     Active Substance: PREDNISONE
     Dosage: 12.5 MG, UNK
  6. BENLYSTA [Suspect]
     Active Substance: BELIMUMAB
     Dosage: UNK, Z
     Dates: start: 20140123, end: 20140303
  7. IMURAN [Concomitant]
     Active Substance: AZATHIOPRINE
     Indication: PRODUCT USED FOR UNKNOWN INDICATION
     Dosage: 150 MG, QD
  8. CLONAZEPAM. [Concomitant]
     Active Substance: CLONAZEPAM
     Indication: PRODUCT USED FOR UNKNOWN INDICATION
     Dosage: UNK, 2.5 MG QAM AND 5MG IN THE AFTERNOON
  9. COVERSYL [Concomitant]
     Active Substance: PERINDOPRIL
     Indication: HYPERTENSION
     Dosage: 6 MG, QD
  10. BENLYSTA [Suspect]
     Active Substance: BELIMUMAB
     Dosage: 820/ 4 WEEKS
  11. BENLYSTA [Suspect]
     Active Substance: BELIMUMAB
     Dosage: 840 MG, UNK
     Route: 042
  12. CELLCEPT [Concomitant]
     Active Substance: MYCOPHENOLATE MOFETIL\MYCOPHENOLATE MOFETIL HYDROCHLORIDE
     Indication: LUPUS NEPHRITIS
     Dosage: UNK
  13. METHOTREXATE. [Concomitant]
     Active Substance: METHOTREXATE
     Indication: RENAL IMPAIRMENT
     Dosage: UNK
  14. ASPIRIN (BABY) [Concomitant]
     Active Substance: ASPIRIN
     Indication: PRODUCT USED FOR UNKNOWN INDICATION
     Dosage: UNK UNK, QD
  15. ZOLOFT [Concomitant]
     Active Substance: SERTRALINE HYDROCHLORIDE
     Indication: DEPRESSION
     Dosage: 1150 MG, QD
  16. BENLYSTA [Suspect]
     Active Substance: BELIMUMAB
     Dosage: 820 MG, UNK
     Route: 042
  17. PREDNISONE. [Suspect]
     Active Substance: PREDNISONE
     Dosage: 30 MG, UNK
  18. PREDNISONE. [Suspect]
     Active Substance: PREDNISONE
     Dosage: 17.5 MG, UNK
  19. MYFORTIC [Concomitant]
     Active Substance: MYCOPHENOLATE SODIUM
     Indication: LUPUS NEPHRITIS
     Dosage: UNK UNK, BID
  20. AZATHIOPRINE. [Concomitant]
     Active Substance: AZATHIOPRINE
     Indication: PRODUCT USED FOR UNKNOWN INDICATION
     Dosage: UNK
  21. BENLYSTA [Suspect]
     Active Substance: BELIMUMAB
     Dosage: 840 MG, UNK
     Route: 042
     Dates: start: 20160309
  22. PLAQUENIL [Concomitant]
     Active Substance: HYDROXYCHLOROQUINE SULFATE
     Indication: PRODUCT USED FOR UNKNOWN INDICATION
     Dosage: 400 MG, QD
  23. ACTONEL [Concomitant]
     Active Substance: RISEDRONATE SODIUM
     Indication: OSTEOPOROSIS
  24. BENLYSTA [Suspect]
     Active Substance: BELIMUMAB
     Dosage: 840 MG, UNK
     Route: 042
  25. PREDNISONE. [Suspect]
     Active Substance: PREDNISONE
     Dosage: UNK
  26. CORTISONE [Suspect]
     Active Substance: CORTISONE\HYDROCORTISONE
     Indication: PRODUCT USED FOR UNKNOWN INDICATION
     Dosage: UNK
  27. LOSEC [Concomitant]
     Active Substance: OMEPRAZOLE
     Indication: GASTRIC DISORDER
     Dosage: 2 DF, QD (20 MG EACH)

REACTIONS (27)
  - Migraine [Unknown]
  - Infection [Unknown]
  - Drug ineffective [Unknown]
  - Muscle atrophy [Unknown]
  - Chest pain [Unknown]
  - Hospitalisation [Unknown]
  - Myalgia [Unknown]
  - Systemic lupus erythematosus [Unknown]
  - Fatigue [Unknown]
  - Asthenia [Unknown]
  - Cardiac operation [Unknown]
  - Weight increased [Unknown]
  - Pain [Unknown]
  - Back pain [Unknown]
  - Arthralgia [Unknown]
  - Headache [Recovered/Resolved]
  - Bone density decreased [Unknown]
  - Dyspnoea [Unknown]
  - Rib fracture [Recovered/Resolved]
  - Limb discomfort [Unknown]
  - Condition aggravated [Unknown]
  - Urinary tract infection [Unknown]
  - Pericarditis [Recovered/Resolved]
  - Scar [Unknown]
  - Pain in extremity [Unknown]
  - Osteoporosis [Not Recovered/Not Resolved]
  - Meningitis [Unknown]

NARRATIVE: CASE EVENT DATE: 20140123
